FAERS Safety Report 4406215-0 (Version None)
Quarter: 2004Q3

REPORT INFORMATION
  Report Type: 
  Country: None (occurrence: None)
  Receive Date: 20040723
  Receipt Date: 20040518
  Transmission Date: 20050211
  Serious: Yes (Other)
  Sender: FDA-Public Use
  Company Number: US-GLAXOSMITHKLINE-A0511467A

PATIENT
  Age: 52 Year
  Sex: Female
  Weight: 87.3 kg

DRUGS (8)
  1. AVANDIA [Suspect]
     Dosage: 4MG PER DAY
     Route: 048
     Dates: start: 20040419, end: 20040510
  2. AVAPRO [Concomitant]
  3. GLUCOVANCE [Concomitant]
  4. XANAX [Concomitant]
  5. NAPROSYN [Concomitant]
  6. ZOCOR [Concomitant]
  7. ASPIRIN [Concomitant]
  8. M.V.I. [Concomitant]

REACTIONS (2)
  - OEDEMA PERIPHERAL [None]
  - PULMONARY OEDEMA [None]
